FAERS Safety Report 25145702 (Version 1)
Quarter: 2025Q2

REPORT INFORMATION
  Report Type: Spontaneous
  Country: US (occurrence: US)
  Receive Date: 20250401
  Receipt Date: 20250401
  Transmission Date: 20250717
  Serious: No
  Sender: INNOGENIX
  Company Number: US-Innogenix, LLC-2174019

PATIENT

DRUGS (2)
  1. PROPRANOLOL HYDROCHLORIDE [Suspect]
     Active Substance: PROPRANOLOL HYDROCHLORIDE
     Indication: Postural orthostatic tachycardia syndrome
  2. IVABRADINE [Concomitant]
     Active Substance: IVABRADINE

REACTIONS (1)
  - Drug ineffective for unapproved indication [Unknown]
